FAERS Safety Report 25225273 (Version 1)
Quarter: 2025Q2

REPORT INFORMATION
  Report Type: Spontaneous
  Country: CN (occurrence: CN)
  Receive Date: 20250422
  Receipt Date: 20250422
  Transmission Date: 20250717
  Serious: Yes (Other)
  Sender: NOVARTIS
  Company Number: CN-002147023-NVSC2025CN064426

PATIENT
  Age: 73 Year
  Sex: Male

DRUGS (1)
  1. GLIVEC [Suspect]
     Active Substance: IMATINIB MESYLATE
     Indication: Gastrointestinal stromal tumour
     Route: 048
     Dates: start: 20220715

REACTIONS (4)
  - Paralysis [Unknown]
  - Brain neoplasm [Unknown]
  - Second primary malignancy [Unknown]
  - White blood cell count decreased [Unknown]
